FAERS Safety Report 7732150-6 (Version None)
Quarter: 2011Q3

REPORT INFORMATION
  Report Type: 
  Country: None (occurrence: None)
  Receive Date: 20110906
  Receipt Date: 20110811
  Transmission Date: 20111222
  Serious: No
  Sender: FDA-Public Use
  Company Number: US-AMGEN-USASP2011041166

PATIENT
  Age: 67 Year
  Sex: Female

DRUGS (9)
  1. MOBIC [Concomitant]
  2. PERCOCET [Concomitant]
  3. MORPHINE [Concomitant]
  4. PROLIA [Suspect]
     Indication: OSTEOPOROSIS POSTMENOPAUSAL
     Dosage: 60 MG, Q6MO
     Dates: start: 20110729
  5. AMITRIPTYLINE HCL [Concomitant]
  6. EVISTA [Concomitant]
  7. CYMBALTA [Concomitant]
  8. CALCIUM CARBONATE [Concomitant]
     Dosage: UNK
  9. SYNTHROID [Concomitant]

REACTIONS (5)
  - MUSCULOSKELETAL PAIN [None]
  - BURSITIS [None]
  - BACK PAIN [None]
  - PAIN IN JAW [None]
  - PAIN IN EXTREMITY [None]
